FAERS Safety Report 7366698-3 (Version None)
Quarter: 2011Q1

REPORT INFORMATION
  Report Type: 
  Country: None (occurrence: None)
  Receive Date: 20110322
  Receipt Date: 20110317
  Transmission Date: 20110831
  Serious: Yes (Life-Threatening, Other)
  Sender: FDA-Public Use
  Company Number: FR-ROCHE-600192

PATIENT
  Sex: Female
  Weight: 74 kg

DRUGS (20)
  1. PAROXETINE HCL [Concomitant]
     Dates: start: 19850101
  2. APREPITANT [Concomitant]
     Dates: start: 20081016, end: 20081127
  3. METOPIMAZINE [Concomitant]
     Dates: start: 20081106, end: 20081109
  4. ZOPHREN [Concomitant]
     Dates: start: 20081106, end: 20081106
  5. PARACETAMOL [Concomitant]
  6. VENTOLIN [Concomitant]
     Dosage: TDD REPORTED AS 6 BOTTLES. DRUG REPORTED AS VENTOLINE-SALBUTAMOL.
     Dates: start: 20081125, end: 20081201
  7. DEXRAZOXANE [Concomitant]
     Dates: start: 20081106, end: 20081106
  8. ALTIZIDE [Concomitant]
     Dates: start: 19980101, end: 20081217
  9. FLUOROURACIL [Suspect]
     Indication: BREAST CANCER
     Route: 065
     Dates: start: 20081106, end: 20081106
  10. EPIRUBICIN [Suspect]
     Indication: BREAST CANCER
     Dosage: TDD REPORTED AS 188/MG.
     Route: 065
     Dates: start: 20081106, end: 20081106
  11. PREDNISOLONE [Concomitant]
     Dates: start: 20081125, end: 20081127
  12. SPIRONOLACTONE [Concomitant]
     Dates: start: 19980101, end: 20081217
  13. PRAVASTATIN [Concomitant]
     Dosage: TDD REPORTED AS 20
     Dates: start: 19930101
  14. BECOTIDE [Concomitant]
     Dosage: TDD REPORTED AS 6 BOTTLES. DRUG REPORTED AS BECOTIDE 250 MG
     Dates: start: 20081125, end: 20081201
  15. LEVOTHYROX [Concomitant]
     Dosage: TDD REPORTED AS 75.
     Dates: start: 20050101
  16. ROXITHROMYCINE [Concomitant]
     Dosage: TDD REPORTED AS 150.
     Dates: start: 20081125, end: 20081201
  17. SOLU-MEDROL [Concomitant]
     Dates: start: 20081106, end: 20081106
  18. BEVACIZUMAB [Suspect]
     Indication: BREAST CANCER
     Dosage: DOSAGE FORM: 15MG/KG, THERAPY PERMANENTLY DISCONTINUED. LAST DOSE PRIOR TO SAE: 06 NOV 2008.
     Route: 042
     Dates: start: 20081016, end: 20090115
  19. CYCLOPHOSPHAMIDE [Suspect]
     Indication: BREAST CANCER
     Route: 065
     Dates: start: 20081106, end: 20081106
  20. BISOPROLOL [Concomitant]
     Dates: start: 19980101, end: 20081217

REACTIONS (3)
  - LEFT VENTRICULAR DYSFUNCTION [None]
  - ATRIAL FIBRILLATION [None]
  - CARDIAC FAILURE [None]
